FAERS Safety Report 12418657 (Version 1)
Quarter: 2016Q2

REPORT INFORMATION
  Report Type: Spontaneous
  Country: US (occurrence: US)
  Receive Date: 20160531
  Receipt Date: 20160531
  Transmission Date: 20160815
  Serious: No
  Sender: FDA-Public Use
  Company Number: US-009507513-1605USA003533

PATIENT
  Age: 52 Year
  Sex: Male

DRUGS (1)
  1. ZEPATIER [Suspect]
     Active Substance: ELBASVIR\GRAZOPREVIR
     Indication: HEPATITIS C
     Dosage: 100/50 MICROGRAM, ONCE PER DAY
     Route: 048
     Dates: start: 2016

REACTIONS (3)
  - Drug dose omission [Unknown]
  - Medication residue present [Unknown]
  - No adverse event [Unknown]

NARRATIVE: CASE EVENT DATE: 2016
